FAERS Safety Report 9417594 (Version 1)
Quarter: 2013Q3

REPORT INFORMATION
  Report Type: Spontaneous
  Country: US (occurrence: US)
  Receive Date: 20130724
  Receipt Date: 20130724
  Transmission Date: 20140515
  Serious: No
  Sender: FDA-Public Use
  Company Number: US-BRISTOL-MYERS SQUIBB COMPANY-18999078

PATIENT
  Age: 82 Year
  Sex: Male
  Weight: 95.24 kg

DRUGS (2)
  1. ELIQUIS [Suspect]
     Dates: start: 20130510
  2. AMIODARONE [Concomitant]

REACTIONS (3)
  - Asthenia [Unknown]
  - Gait disturbance [Unknown]
  - Somnolence [Unknown]
